FAERS Safety Report 25211945 (Version 3)
Quarter: 2025Q3

REPORT INFORMATION
  Report Type: Spontaneous
  Country: US (occurrence: US)
  Receive Date: 20250418
  Receipt Date: 20250727
  Transmission Date: 20251020
  Serious: No
  Sender: BRISTOL-MYERS SQUIBB COMPANY
  Company Number: US-BRISTOL-MYERS SQUIBB COMPANY-2025-052720

PATIENT
  Age: 77 Year
  Sex: Female
  Weight: 71.76 kg

DRUGS (2)
  1. IDHIFA [Suspect]
     Active Substance: ENASIDENIB MESYLATE
     Indication: Acute myeloid leukaemia
     Route: 048
     Dates: start: 20240501
  2. IDHIFA [Suspect]
     Active Substance: ENASIDENIB MESYLATE
     Route: 048
     Dates: start: 202404

REACTIONS (6)
  - Liver function test increased [Unknown]
  - Rash [Unknown]
  - Measles [Unknown]
  - Rash macular [Unknown]
  - Pruritus [Unknown]
  - Back pain [Unknown]
